FAERS Safety Report 6075905-9 (Version None)
Quarter: 2009Q1

REPORT INFORMATION
  Report Type: 
  Country: None (occurrence: None)
  Receive Date: 20090209
  Receipt Date: 20090127
  Transmission Date: 20090719
  Serious: Yes (Hospitalization)
  Sender: FDA-Public Use
  Company Number: 1000003805

PATIENT
  Sex: Male
  Weight: 3.52 kg

DRUGS (4)
  1. CITALOPRAM HYDROBROMIDE [Suspect]
     Dosage: 0.5 DOSAGTE FORMS (0.5 DOSAGE FORMS, 1 IN 1 D), TRANSPLACENTAL
     Route: 064
     Dates: end: 20080903
  2. XANAX [Suspect]
     Dosage: 0.75 DOSAGE FORMS (0.75 DOSAGE FORMS, 1 IN 1 D), TRANSPLACENTAL
     Route: 064
     Dates: end: 20080903
  3. DINOPROSTONE [Concomitant]
  4. CELECTOL [Concomitant]

REACTIONS (2)
  - MATERNAL DRUGS AFFECTING FOETUS [None]
  - NEONATAL RESPIRATORY DISTRESS SYNDROME [None]
